FAERS Safety Report 8950428 (Version 3)
Quarter: 2013Q1

REPORT INFORMATION
  Report Type: Spontaneous
  Country: US (occurrence: US)
  Receive Date: 20121207
  Receipt Date: 20130125
  Transmission Date: 20140127
  Serious: No
  Sender: FDA-Public Use
  Company Number: US-PFIZER INC-2012307924

PATIENT
  Age: 64 Year
  Sex: Female
  Weight: 87.53 kg

DRUGS (7)
  1. LYRICA [Suspect]
     Indication: DIABETIC NEUROPATHY
     Dosage: 75 MG, 3X/DAY
     Route: 048
     Dates: start: 201211, end: 201211
  2. LYRICA [Suspect]
     Dosage: UNK
     Dates: start: 20121203
  3. GLIPIZIDE [Concomitant]
     Indication: DIABETES MELLITUS
     Dosage: UNK, 2X/DAY
  4. METFORMIN [Concomitant]
     Indication: DIABETES MELLITUS
     Dosage: UNK, 2X/DAY
  5. LISINOPRIL [Concomitant]
     Indication: PROPHYLAXIS
     Dosage: UNK, 1X/DAY
  6. PRAVASTATIN [Concomitant]
     Indication: BLOOD CHOLESTEROL INCREASED
     Dosage: UNK, 1X/DAY
  7. OXYBUTYNIN [Concomitant]
     Indication: HYPERTONIC BLADDER
     Dosage: UNK, 1X/DAY

REACTIONS (2)
  - Pain in extremity [Not Recovered/Not Resolved]
  - Discomfort [Not Recovered/Not Resolved]
